FAERS Safety Report 17227340 (Version 1)
Quarter: 2020Q1

REPORT INFORMATION
  Report Type: Spontaneous
  Country: GB (occurrence: GB)
  Receive Date: 20200103
  Receipt Date: 20200103
  Transmission Date: 20200409
  Serious: Yes (Hospitalization, Other)
  Sender: FDA-Public Use
  Company Number: GB-009507513-2001GBR000327

PATIENT
  Sex: Male

DRUGS (3)
  1. NOXAFIL [Suspect]
     Active Substance: POSACONAZOLE
     Dosage: 300 MILLIGRAM OD
     Dates: start: 20180621
  2. MODIGRAF [Suspect]
     Active Substance: TACROLIMUS
     Dosage: 200 MICROGRAM, BID
     Dates: start: 20180621
  3. PREDNISOLONE. [Suspect]
     Active Substance: PREDNISOLONE
     Dosage: 10 MILLIGRAM OD
     Dates: start: 20180621

REACTIONS (2)
  - Pneumonia [Unknown]
  - Herpes zoster [Unknown]
